FAERS Safety Report 16659720 (Version 1)
Quarter: 2019Q3

REPORT INFORMATION
  Report Type: Spontaneous
  Country: US (occurrence: US)
  Receive Date: 20190618
  Receipt Date: 20190618
  Transmission Date: 20191004
  Serious: Yes (Death)
  Sender: FDA-Public Use
  Company Number: None

PATIENT
  Age: 78 Year
  Sex: Male
  Weight: 71 kg

DRUGS (3)
  1. G-CSF [Suspect]
     Active Substance: GRANULOCYTE COLONY-STIMULATING FACTOR NOS
     Dates: end: 20080714
  2. FILGRASTIM [Suspect]
     Active Substance: FILGRASTIM
  3. MELPHALAN. [Suspect]
     Active Substance: MELPHALAN
     Dates: end: 20080628

REACTIONS (1)
  - Death [None]

NARRATIVE: CASE EVENT DATE: 20181230
